FAERS Safety Report 23258703 (Version 2)
Quarter: 2023Q4

REPORT INFORMATION
  Report Type: Spontaneous
  Country: JP (occurrence: JP)
  Receive Date: 20231204
  Receipt Date: 20231209
  Transmission Date: 20240109
  Serious: No
  Sender: FDA-Public Use
  Company Number: JP-OPELLA-2023OHG016882

PATIENT
  Age: 74 Year

DRUGS (1)
  1. XYZAL [Suspect]
     Active Substance: LEVOCETIRIZINE DIHYDROCHLORIDE
     Indication: Product used for unknown indication
     Dosage: UNK, 2X/DAY (BID)
     Route: 065

REACTIONS (1)
  - Inappropriate schedule of product administration [Unknown]
